FAERS Safety Report 19890953 (Version 1)
Quarter: 2021Q3

REPORT INFORMATION
  Report Type: Spontaneous
  Country: US (occurrence: US)
  Receive Date: 20210928
  Receipt Date: 20210928
  Transmission Date: 20211014
  Serious: Yes (Hospitalization)
  Sender: FDA-Public Use
  Company Number: NVSC2021US213384

PATIENT
  Age: 19 Year
  Sex: Male
  Weight: 74.4 kg

DRUGS (9)
  1. SULFADIAZINE. [Suspect]
     Active Substance: SULFADIAZINE
     Indication: TOXOPLASMOSIS
     Dosage: UNK
     Route: 065
     Dates: start: 202106, end: 202107
  2. ATIVAN [Concomitant]
     Active Substance: LORAZEPAM
     Indication: PRODUCT USED FOR UNKNOWN INDICATION
     Dosage: UNK
     Route: 065
  3. LEUCOVORIN. [Concomitant]
     Active Substance: LEUCOVORIN
     Indication: EYE INFECTION TOXOPLASMAL
     Dosage: UNK
     Route: 065
     Dates: start: 202107
  4. PYRIMETHAMINE [Suspect]
     Active Substance: PYRIMETHAMINE
     Dosage: 25 MG, BID
     Route: 048
     Dates: start: 20210629, end: 202106
  5. MORPHINE [Concomitant]
     Active Substance: MORPHINE
     Indication: PRODUCT USED FOR UNKNOWN INDICATION
     Dosage: UNK
     Route: 065
  6. SULFADIAZINE. [Suspect]
     Active Substance: SULFADIAZINE
     Indication: EYE INFECTION TOXOPLASMAL
  7. PYRIMETHAMINE [Suspect]
     Active Substance: PYRIMETHAMINE
     Indication: EYE INFECTION TOXOPLASMAL
     Dosage: 50 MG, BID (FOR 1DAY)
     Route: 048
     Dates: start: 20210628, end: 20210628
  8. TYLENOL [Concomitant]
     Active Substance: ACETAMINOPHEN
     Indication: PRODUCT USED FOR UNKNOWN INDICATION
     Dosage: UNK
     Route: 065
  9. BENADRYL [Concomitant]
     Active Substance: DIPHENHYDRAMINE HYDROCHLORIDE
     Indication: PRODUCT USED FOR UNKNOWN INDICATION
     Dosage: UNK
     Route: 065

REACTIONS (25)
  - Headache [Unknown]
  - Pain [Unknown]
  - Communication disorder [Unknown]
  - Visual field defect [Unknown]
  - Communication disorder [Recovered/Resolved]
  - Muscle spasms [Recovered/Resolved]
  - Back disorder [Recovered/Resolved]
  - Crying [Recovered/Resolved]
  - Neuralgia [Recovered/Resolved]
  - Headache [Recovered/Resolved]
  - Syncope [Unknown]
  - Visual snow syndrome [Recovered/Resolved]
  - Eye infection toxoplasmal [Unknown]
  - Dyskinesia [Unknown]
  - Conversion disorder [Unknown]
  - Neuralgia [Recovered/Resolved]
  - Postural orthostatic tachycardia syndrome [Unknown]
  - Memory impairment [Unknown]
  - Tachycardia [Recovered/Resolved]
  - Retrograde amnesia [Unknown]
  - Disorientation [Unknown]
  - Musculoskeletal stiffness [Recovered/Resolved]
  - Anxiety disorder [Unknown]
  - Back disorder [Recovered/Resolved]
  - Toxoplasmosis [Unknown]

NARRATIVE: CASE EVENT DATE: 202106
